FAERS Safety Report 17447102 (Version 3)
Quarter: 2021Q2

REPORT INFORMATION
  Report Type: Spontaneous
  Country: US (occurrence: US)
  Receive Date: 20200221
  Receipt Date: 20210525
  Transmission Date: 20210716
  Serious: Yes (Hospitalization, Other)
  Sender: FDA-Public Use
  Company Number: US-TEVA-2020-US-1188372

PATIENT
  Age: 81 Year
  Sex: Female
  Weight: 102 kg

DRUGS (35)
  1. BAYER ASPIRIN [Concomitant]
     Active Substance: ASPIRIN
     Indication: HYPERTENSION
     Route: 065
     Dates: start: 2005
  2. ULTRAM [Concomitant]
     Active Substance: TRAMADOL HYDROCHLORIDE
     Indication: PAIN
     Dosage: AS NEEDED
     Route: 048
  3. PERCOCET [Concomitant]
     Active Substance: ACETAMINOPHEN\OXYCODONE HYDROCHLORIDE
     Indication: PAIN
     Dosage: ACETAMINOPHEN 325 MG, OXYCODONE 5 MG AS NEEDED
     Route: 048
  4. VALSARTAN/HYDROCHLOROTHIAZIDE ACTAVIS [Suspect]
     Active Substance: HYDROCHLOROTHIAZIDE\VALSARTAN
     Dosage: VALSARTAN 160 MG, HYDROCHLOROTHIAZIDE 12.5 MG
     Route: 065
     Dates: start: 20140619, end: 20140917
  5. DIOVAN [Suspect]
     Active Substance: VALSARTAN
     Route: 065
  6. SPECTRAVITE ULTRA WOMENS SR [Concomitant]
     Dosage: 8 MG IRON ? 400 MCG?300 MCG
     Route: 065
  7. FLONASE [Concomitant]
     Active Substance: FLUTICASONE PROPIONATE
     Dosage: SPRAY 2 SPRAY INTO BOTH NOSTRILS ONCE A DAY
     Route: 045
  8. PAMELOR [Concomitant]
     Active Substance: NORTRIPTYLINE HYDROCHLORIDE
     Route: 065
  9. VALSARTAN/HYDROCHLOROTHIAZIDE ACTAVIS [Suspect]
     Active Substance: HYDROCHLOROTHIAZIDE\VALSARTAN
     Dosage: VALSARTAN 160 MG, HYDROCHLOROTHIAZIDE 12.5 MG
     Route: 065
     Dates: start: 20180712, end: 20181010
  10. CARAFATE [Concomitant]
     Active Substance: SUCRALFATE
     Dosage: (1 G TOTAL) SUSPENSION
     Route: 048
  11. FERRIC CARBOXYMALTOSE IN SODIUM CHLORIDE [Concomitant]
     Dosage: 750 MG IN SODIUM CHLORIDE (NS) 0.9 % 250 ML IVPB, ONCE
     Route: 042
     Dates: end: 20171003
  12. VALSARTAN/HYDROCHLOROTHIAZIDE ACTAVIS [Suspect]
     Active Substance: HYDROCHLOROTHIAZIDE\VALSARTAN
     Dosage: VALSARTAN 160 MG, HYDROCHLOROTHIAZIDE 12.5 MG
     Route: 065
     Dates: start: 20141201, end: 20150824
  13. FLUTICASONE PROPIONATE. [Concomitant]
     Active Substance: FLUTICASONE PROPIONATE
     Route: 065
  14. AMLODIPINE BESYLATE. [Concomitant]
     Active Substance: AMLODIPINE BESYLATE
     Indication: HYPERTENSION
     Route: 048
     Dates: start: 2005
  15. TYLENOL [Concomitant]
     Active Substance: ACETAMINOPHEN
     Indication: PAIN
     Route: 065
  16. ZOFRAN [Concomitant]
     Active Substance: ONDANSETRON HYDROCHLORIDE
     Indication: NAUSEA
     Dosage: 12 MILLIGRAM DAILY; AS NEEDED
     Route: 048
  17. TOLTERODINE TARTRATE ER [Concomitant]
     Indication: HYPERTENSION
     Route: 048
     Dates: start: 2005
  18. HYDROCHLOROTHIAZIDE. [Concomitant]
     Active Substance: HYDROCHLOROTHIAZIDE
     Indication: HYPERTENSION
     Route: 065
     Dates: start: 202001
  19. NORVASC [Concomitant]
     Active Substance: AMLODIPINE BESYLATE
     Route: 048
  20. VALSARTAN/HYDROCHLOROTHIAZIDE ACTAVIS [Suspect]
     Active Substance: HYDROCHLOROTHIAZIDE\VALSARTAN
     Indication: HYPERTENSION
     Dosage: VALSARTAN 160 MG, HYDROCHLOROTHIAZIDE 12.5 MG
     Route: 065
     Dates: start: 20131016, end: 20140114
  21. VALSARTAN/HYDROCHLOROTHIAZIDE ACTAVIS [Suspect]
     Active Substance: HYDROCHLOROTHIAZIDE\VALSARTAN
     Route: 065
     Dates: start: 20180126, end: 20180426
  22. POTASSIUM [Concomitant]
     Active Substance: POTASSIUM
     Indication: HYPERTENSION
     Route: 065
  23. ASPIRIN. [Concomitant]
     Active Substance: ASPIRIN
     Route: 048
  24. FLEXERIL [Concomitant]
     Active Substance: CYCLOBENZAPRINE HYDROCHLORIDE
     Indication: MUSCLE SPASMS
     Dosage: AS NEEDED
     Route: 048
  25. ADULT LOW DOSE ASPIRIN [Concomitant]
     Active Substance: ASPIRIN
     Dosage: 81 MILLIGRAM DAILY;
     Route: 048
     Dates: start: 20141118
  26. VALSARTAN/HYDROCHLOROTHIAZIDE ACTAVIS [Suspect]
     Active Substance: HYDROCHLOROTHIAZIDE\VALSARTAN
     Dosage: VALSARTAN 160 MG, HYDROCHLOROTHIAZIDE 12.5 MG
     Route: 065
     Dates: start: 20151102, end: 20160131
  27. DIOVAN HCT [Suspect]
     Active Substance: HYDROCHLOROTHIAZIDE\VALSARTAN
     Dosage: 12.5 MG HYDROCHLOROTHIAZIDE, 160 MG VALSARTAN
     Route: 048
  28. VITAMIN B12 [Concomitant]
     Active Substance: CYANOCOBALAMIN
     Indication: VITAMIN B COMPLEX DEFICIENCY
     Route: 048
     Dates: start: 2005
  29. ECOTRIN [Concomitant]
     Active Substance: ASPIRIN
     Route: 048
  30. B?COMPLEX WITH VITAMIN C [Concomitant]
     Route: 065
  31. NORCO [Concomitant]
     Active Substance: ACETAMINOPHEN\HYDROCODONE BITARTRATE
     Indication: PAIN
     Dosage: ACETAMINOPHEN 325 MG, HYDROCODONE 5 MG TAKE 1 TABLET BY MOUTH EVERY SIX HOURS AS NEEDED.
     Route: 048
  32. DETROL LA [Concomitant]
     Active Substance: TOLTERODINE TARTRATE
     Route: 048
  33. BYSTOLIC [Concomitant]
     Active Substance: NEBIVOLOL HYDROCHLORIDE
     Indication: HYPERTENSION
     Route: 048
     Dates: start: 2005
  34. LYRICA [Concomitant]
     Active Substance: PREGABALIN
     Dosage: 16.6667 MILLIGRAM DAILY;
     Route: 048
  35. VITAMIN B12 FOLIC ACID [Concomitant]
     Dosage: VITAMIN B12 400 MCG, FOLIC ACID 500 MCG
     Route: 048

REACTIONS (3)
  - Bronchioloalveolar carcinoma [Unknown]
  - Constipation [Unknown]
  - Colon cancer stage II [Recovered/Resolved]

NARRATIVE: CASE EVENT DATE: 20180119
